FAERS Safety Report 23154445 (Version 1)
Quarter: 2023Q4

REPORT INFORMATION
  Report Type: Spontaneous
  Country: RU (occurrence: RU)
  Receive Date: 20231107
  Receipt Date: 20231107
  Transmission Date: 20240110
  Serious: Yes (Life-Threatening)
  Sender: FDA-Public Use
  Company Number: RU-AMERICAN REGENT INC-2023002569

PATIENT
  Age: 45 Year
  Sex: Female
  Weight: 56 kg

DRUGS (1)
  1. FERINJECT [Suspect]
     Active Substance: FERRIC CARBOXYMALTOSE
     Indication: Product used for unknown indication
     Dosage: 100 MILLIGRAM, 1 IN 1 TOTAL (DILUTED IN 100 ML NACL (BATCH 0690423, MOSPHARM)
     Dates: start: 20231024, end: 20231024

REACTIONS (5)
  - Product preparation issue [Unknown]
  - Urticaria [Recovering/Resolving]
  - Dyspnoea [Recovering/Resolving]
  - Abdominal discomfort [Recovering/Resolving]
  - Flushing [Recovering/Resolving]

NARRATIVE: CASE EVENT DATE: 20231024
